FAERS Safety Report 12949952 (Version 1)
Quarter: 2016Q4

REPORT INFORMATION
  Report Type: Spontaneous
  Country: US (occurrence: US)
  Receive Date: 20161116
  Receipt Date: 20161116
  Transmission Date: 20170207
  Serious: No
  Sender: FDA-Public Use
  Company Number: None

PATIENT
  Age: 29 Year
  Sex: Female
  Weight: 71.7 kg

DRUGS (1)
  1. METOCLOPRAMIDE 5MG/ML [Suspect]
     Active Substance: METOCLOPRAMIDE
     Indication: PROPHYLAXIS OF NAUSEA AND VOMITING
     Dosage: ?          OTHER FREQUENCY:ONCE;?
     Route: 042
     Dates: start: 20161004, end: 20161004

REACTIONS (2)
  - Dystonia [None]
  - Anxiety [None]

NARRATIVE: CASE EVENT DATE: 20161004
